FAERS Safety Report 17524493 (Version 1)
Quarter: 2020Q1

REPORT INFORMATION
  Report Type: Spontaneous
  Country: US (occurrence: US)
  Receive Date: 20200303
  Receipt Date: 20200303
  Transmission Date: 20200409
  Serious: Yes (Death, Hospitalization)
  Sender: FDA-Public Use
  Company Number: None

PATIENT
  Sex: Male
  Weight: 57.5 kg

DRUGS (1)
  1. NALOXEGOL OXALATE. [Suspect]
     Active Substance: NALOXEGOL OXALATE
     Dates: end: 20200217

REACTIONS (5)
  - Hypoxia [None]
  - Neutropenia [None]
  - Pneumonia [None]
  - White blood cell count decreased [None]
  - Pleural effusion [None]

NARRATIVE: CASE EVENT DATE: 20200218
